FAERS Safety Report 10050098 (Version 1)
Quarter: 2014Q1

REPORT INFORMATION
  Report Type: Spontaneous
  Country: US (occurrence: None)
  Receive Date: 20140331
  Receipt Date: 20140331
  Transmission Date: 20141002
  Serious: Yes (Hospitalization)
  Sender: FDA-Public Use
  Company Number: None

PATIENT
  Age: 65 Year
  Sex: Male

DRUGS (1)
  1. CIMZIA [Suspect]
     Dosage: 1/30/2014-ONGOING?400 MG ?Q 4 WEEKS?SUB Q
     Dates: start: 20140130

REACTIONS (1)
  - Investigation [None]
